FAERS Safety Report 24292857 (Version 1)
Quarter: 2024Q3

REPORT INFORMATION
  Report Type: Spontaneous
  Country: US (occurrence: None)
  Receive Date: 20240906
  Receipt Date: 20240906
  Transmission Date: 20241016
  Serious: No
  Sender: DOMPE FARMACEUTICI
  Company Number: US-FARMAPROD-202308-202310-3155

PATIENT
  Sex: Female

DRUGS (7)
  1. OXERVATE [Suspect]
     Active Substance: CENEGERMIN-BKBJ
     Indication: Neurotrophic keratopathy
     Route: 047
     Dates: start: 20231019
  2. OXERVATE [Suspect]
     Active Substance: CENEGERMIN-BKBJ
  3. ALLOPURINOL [Concomitant]
     Active Substance: ALLOPURINOL
  4. HYDROCHLOROTHIAZIDE [Concomitant]
     Active Substance: HYDROCHLOROTHIAZIDE
  5. LISINOPRIL [Concomitant]
     Active Substance: LISINOPRIL
  6. FISH OIL [Concomitant]
     Active Substance: FISH OIL
     Dosage: 100-160 MG
  7. REFRESH RELIEVA [Concomitant]
     Active Substance: CARBOXYMETHYLCELLULOSE SODIUM\GLYCERIN
     Dosage: 0.5%-0.9%

REACTIONS (5)
  - Eye pain [Not Recovered/Not Resolved]
  - Ocular discomfort [Unknown]
  - Ocular hyperaemia [Not Recovered/Not Resolved]
  - Drug ineffective [Unknown]
  - Photophobia [Unknown]
